FAERS Safety Report 5225539-0 (Version None)
Quarter: 2007Q1

REPORT INFORMATION
  Report Type: 
  Country: None (occurrence: None)
  Receive Date: 20070131
  Receipt Date: 20070121
  Transmission Date: 20070707
  Serious: Yes (Other)
  Sender: FDA-Public Use
  Company Number: US-PFIZER INC-2007005979

PATIENT
  Sex: Female
  Weight: 62.6 kg

DRUGS (18)
  1. CHANTIX [Suspect]
     Indication: EX-SMOKER
     Route: 048
  2. CYMBALTA [Concomitant]
  3. PREVACID [Concomitant]
  4. SPIRONOLACTONE [Concomitant]
  5. DETROL LA [Concomitant]
  6. COZAAR [Concomitant]
  7. COREG [Concomitant]
  8. DIAZEPAM [Concomitant]
  9. METOLAZONE [Concomitant]
  10. FOLIC ACID [Concomitant]
  11. MAGNESIUM OXIDE [Concomitant]
  12. DIGITEK [Concomitant]
  13. ZYRTEC [Concomitant]
  14. AMARYL [Concomitant]
  15. ZINCATE [Concomitant]
  16. BUMEX [Concomitant]
  17. ASCORBIC ACID [Concomitant]
  18. VITAMIN CAP [Concomitant]

REACTIONS (1)
  - BLOOD GLUCOSE INCREASED [None]
